FAERS Safety Report 8739312 (Version 2)
Quarter: 2012Q4

REPORT INFORMATION
  Report Type: 
  Country: US (occurrence: US)
  Receive Date: 20120823
  Receipt Date: 20120904
  Transmission Date: 20130627
  Serious: Yes (Death, Life-Threatening, Hospitalization)
  Sender: FDA-Public Use
  Company Number: US-MERCK-1208USA003285

PATIENT

DRUGS (4)
  1. VORINOSTAT [Suspect]
     Indication: GLIOBLASTOMA MULTIFORME
     Dosage: 300 mg, on days 1-5, qw
     Route: 048
     Dates: start: 20120702
  2. VORINOSTAT [Suspect]
     Dosage: 300 mg, on days 1-5, qw
     Route: 048
     Dates: start: 20120723, end: 20120730
  3. TEMOZOLOMIDE [Suspect]
     Indication: GLIOBLASTOMA MULTIFORME
     Dosage: 75 mg/m2, qd
     Route: 048
     Dates: start: 20120702
  4. TEMOZOLOMIDE [Suspect]
     Dosage: 75 mg/m2, qd
     Route: 048
     Dates: start: 20120723, end: 20120730

REACTIONS (11)
  - Death [Fatal]
  - White blood cell count decreased [Not Recovered/Not Resolved]
  - Platelet count decreased [Not Recovered/Not Resolved]
  - Neutrophil count decreased [Not Recovered/Not Resolved]
  - Febrile neutropenia [Not Recovered/Not Resolved]
  - Blood alkaline phosphatase increased [None]
  - Alanine aminotransferase increased [None]
  - Aspartate aminotransferase increased [None]
  - Blood bilirubin increased [None]
  - Bilirubin conjugated increased [None]
  - Pancytopenia [None]
